FAERS Safety Report 23943046 (Version 1)
Quarter: 2024Q2

REPORT INFORMATION
  Report Type: Spontaneous
  Country: US (occurrence: US)
  Receive Date: 20240605
  Receipt Date: 20240605
  Transmission Date: 20240716
  Serious: Yes (Hospitalization)
  Sender: FDA-Public Use
  Company Number: US-TEVA-VS-3203530

PATIENT
  Age: 81 Year
  Sex: Female

DRUGS (3)
  1. AUSTEDO [Suspect]
     Active Substance: DEUTETRABENAZINE
     Indication: Huntington^s disease
     Route: 065
     Dates: start: 2024
  2. AUSTEDO [Suspect]
     Active Substance: DEUTETRABENAZINE
     Indication: Huntington^s disease
     Route: 065
     Dates: start: 2024
  3. AUSTEDO [Suspect]
     Active Substance: DEUTETRABENAZINE
     Indication: Huntington^s disease
     Route: 065
     Dates: start: 2021

REACTIONS (6)
  - Urinary tract infection [Unknown]
  - Living in residential institution [Recovered/Resolved]
  - Dyskinesia [Recovered/Resolved with Sequelae]
  - Sepsis [Unknown]
  - Therapeutic product effect variable [Recovered/Resolved with Sequelae]
  - Therapy change [Recovered/Resolved]

NARRATIVE: CASE EVENT DATE: 20231229
